FAERS Safety Report 23280548 (Version 1)
Quarter: 2023Q4

REPORT INFORMATION
  Report Type: Spontaneous
  Country: US (occurrence: US)
  Receive Date: 20231211
  Receipt Date: 20231211
  Transmission Date: 20240109
  Serious: Yes (Hospitalization, Other)
  Sender: FDA-Public Use
  Company Number: US-ANXN-000016

PATIENT
  Age: 50 Year
  Sex: Male

DRUGS (2)
  1. SEVELAMER CARBONATE [Suspect]
     Active Substance: SEVELAMER CARBONATE
     Indication: Chronic kidney disease
     Route: 065
  2. ACETAMINOPHEN\HYDROCODONE [Suspect]
     Active Substance: ACETAMINOPHEN\HYDROCODONE
     Indication: Chronic kidney disease
     Dosage: (10 MG/325 MG) EVERY 8 HOURS AS NEEDED.
     Route: 065

REACTIONS (6)
  - Calciphylaxis [Unknown]
  - Cellulitis [Unknown]
  - Breakthrough pain [Unknown]
  - Blood phosphorus increased [Unknown]
  - Rhonchi [Unknown]
  - Apnoeic attack [Unknown]
